FAERS Safety Report 19221118 (Version 4)
Quarter: 2021Q3

REPORT INFORMATION
  Report Type: Report from Study
  Country: AU (occurrence: AU)
  Receive Date: 20210506
  Receipt Date: 20210827
  Transmission Date: 20211014
  Serious: Yes (Hospitalization)
  Sender: FDA-Public Use
  Company Number: NVSC2021AU096563

PATIENT
  Age: 61 Year
  Sex: Male
  Weight: 62.4 kg

DRUGS (29)
  1. SIPONIMOD [Suspect]
     Active Substance: SIPONIMOD
     Indication: SECONDARY PROGRESSIVE MULTIPLE SCLEROSIS
     Dosage: UNK
     Route: 048
     Dates: start: 20141017, end: 20160313
  2. CODRAL [Concomitant]
     Indication: VIRAL INFECTION
     Dosage: 2 OTHER, ONCE
     Route: 048
     Dates: start: 20170426, end: 20170427
  3. CEPHAZOLIN [Concomitant]
     Active Substance: CEFAZOLIN
     Indication: HIP FRACTURE
     Dosage: 2 G, TID
     Route: 042
     Dates: start: 20170515, end: 20170516
  4. PERINDOPRIL [Concomitant]
     Active Substance: PERINDOPRIL
     Indication: HYPERTENSION
     Dosage: 5 MG, QD
     Route: 048
     Dates: start: 20201001
  5. CRESTOR [Concomitant]
     Active Substance: ROSUVASTATIN CALCIUM
     Dosage: 10 MG
     Route: 048
     Dates: start: 20210427
  6. TARGIN [Concomitant]
     Active Substance: NALOXONE HYDROCHLORIDE\OXYCODONE HYDROCHLORIDE
     Indication: HIP FRACTURE
     Dosage: 3 UNK, OTHER
     Route: 048
     Dates: start: 20170515, end: 20170516
  7. MOVICOL [Concomitant]
     Active Substance: POLYETHYLENE GLYCOL 3350\POTASSIUM CHLORIDE\SODIUM BICARBONATE\SODIUM CHLORIDE
     Indication: CONSTIPATION
     Dosage: 1 SACHET BID
     Route: 048
     Dates: start: 20210510, end: 20210514
  8. ZOLEDRONIC ACID [Concomitant]
     Active Substance: ZOLEDRONIC ACID
     Indication: OSTEOPOROSIS
     Dosage: 4 MG, ONCE/SINGLE
     Route: 042
     Dates: start: 20170818, end: 20170818
  9. ACTONEL [Concomitant]
     Active Substance: RISEDRONATE SODIUM
     Indication: OSTEOPOROSIS
     Dosage: 150 MG, QMO
     Route: 048
     Dates: start: 20180803
  10. RAMIPRIL. [Concomitant]
     Active Substance: RAMIPRIL
     Indication: HYPERTENSION
     Dosage: 5 MG, QD
     Route: 048
     Dates: start: 20210427
  11. MOVICOL [Concomitant]
     Active Substance: POLYETHYLENE GLYCOL 3350\POTASSIUM CHLORIDE\SODIUM BICARBONATE\SODIUM CHLORIDE
     Dosage: 1 SACHET PRN
     Route: 048
     Dates: start: 20210517, end: 20210604
  12. ENDONE [Concomitant]
     Active Substance: OXYCODONE HYDROCHLORIDE
     Indication: HIP FRACTURE
     Dosage: 5 MG, PRN
     Route: 048
     Dates: start: 20170515, end: 20170515
  13. CLEXANE [Concomitant]
     Active Substance: ENOXAPARIN SODIUM
     Indication: PROPHYLAXIS
     Dosage: 40 MG, QD
     Route: 058
     Dates: start: 20210427, end: 20210604
  14. DOCUSATE [Concomitant]
     Active Substance: DOCUSATE
     Indication: CONSTIPATION
     Dosage: 2 DF, PRN
     Route: 048
     Dates: start: 20210430
  15. NATALIZUMAB [Concomitant]
     Active Substance: NATALIZUMAB
     Indication: MULTIPLE SCLEROSIS
     Dosage: 300 MG, Q4W
     Route: 042
     Dates: start: 20210519
  16. FAMPYRA [Concomitant]
     Active Substance: DALFAMPRIDINE
     Indication: MULTIPLE SCLEROSIS
     Dosage: 10 MG, BID
     Route: 048
     Dates: start: 20140106
  17. PARACETAMOL [Concomitant]
     Active Substance: ACETAMINOPHEN
     Indication: HIP FRACTURE
     Dosage: 1 G, QID
     Route: 042
     Dates: start: 20170515, end: 20170517
  18. DOCUSATE [Concomitant]
     Active Substance: DOCUSATE
     Dosage: 1 DF, PRN
     Route: 048
     Dates: start: 20210516, end: 20210521
  19. METOCLOPRAMIDE. [Concomitant]
     Active Substance: METOCLOPRAMIDE
     Indication: VOMITING
     Dosage: 10 MG, PRN
     Route: 042
     Dates: start: 20210517, end: 20210521
  20. OSTELIN VITAMIN D [Concomitant]
     Active Substance: CHOLECALCIFEROL
     Indication: VITAMIN D DECREASED
     Dosage: 2 OTHER, QD
     Route: 048
     Dates: start: 20150317
  21. HEPARIN [Concomitant]
     Active Substance: HEPARIN SODIUM
     Indication: HIP FRACTURE
     Dosage: 1 ML, BID
     Route: 058
     Dates: start: 20170515, end: 20170517
  22. METHYLPREDNISOLONE. [Concomitant]
     Active Substance: METHYLPREDNISOLONE
     Indication: MULTIPLE SCLEROSIS
     Dosage: 1000 MG
     Route: 042
     Dates: start: 20210428, end: 20210428
  23. MAGNESIUM ASPARTATE [Concomitant]
     Active Substance: MAGNESIUM ASPARTATE
     Indication: GENERAL PHYSICAL CONDITION
     Dosage: 1000 MG, BID
     Route: 048
     Dates: start: 20210517
  24. MULTIVITAMIN [Concomitant]
     Active Substance: VITAMINS
     Indication: GENERAL PHYSICAL CONDITION
     Dosage: 1 DF, QD
     Route: 048
     Dates: start: 20210504, end: 20210521
  25. BAF312 [Suspect]
     Active Substance: SIPONIMOD
     Indication: SECONDARY PROGRESSIVE MULTIPLE SCLEROSIS
     Dosage: 2 MG
     Route: 048
     Dates: start: 20160426, end: 20210427
  26. CRESTOR [Concomitant]
     Active Substance: ROSUVASTATIN CALCIUM
     Indication: DYSLIPIDAEMIA
     Dosage: 5 MG, QD
     Route: 048
     Dates: start: 20160201, end: 20210426
  27. FENTANYL. [Concomitant]
     Active Substance: FENTANYL
     Indication: FRACTURE PAIN
     Dosage: 20 UG, PRN
     Route: 042
     Dates: start: 20170515, end: 20170515
  28. IBUPROFEN. [Concomitant]
     Active Substance: IBUPROFEN
     Indication: FRACTURE PAIN
     Dosage: 40 MG, TID
     Route: 048
     Dates: start: 20170516, end: 20170517
  29. CHOLECALCIFEROL [Concomitant]
     Active Substance: CHOLECALCIFEROL
     Indication: OSTEOPOROSIS
     Dosage: 25 UMG QD
     Route: 048
     Dates: start: 20210427, end: 20210521

REACTIONS (1)
  - Meningitis cryptococcal [Recovering/Resolving]

NARRATIVE: CASE EVENT DATE: 20210426
